FAERS Safety Report 5223414-9 (Version None)
Quarter: 2007Q1

REPORT INFORMATION
  Report Type: 
  Country: None (occurrence: None)
  Receive Date: 20070124
  Receipt Date: 20070108
  Transmission Date: 20070707
  Serious: Yes (Hospitalization)
  Sender: FDA-Public Use
  Company Number: TPG2006A00595

PATIENT
  Age: 75 Year
  Sex: Female

DRUGS (3)
  1. ACTOS [Suspect]
     Indication: DIABETES MELLITUS NON-INSULIN-DEPENDENT
     Dosage: PER ORAL
     Route: 048
  2. INSULIN [Concomitant]
  3. RAMIPRIL [Concomitant]

REACTIONS (13)
  - AORTIC ARTERIOSCLEROSIS [None]
  - BLOOD GLUCOSE INCREASED [None]
  - CHOLELITHIASIS [None]
  - CUSHING'S SYNDROME [None]
  - DECREASED ACTIVITY [None]
  - ECZEMA [None]
  - FACE OEDEMA [None]
  - FUNGAL SKIN INFECTION [None]
  - OEDEMA [None]
  - OEDEMA PERIPHERAL [None]
  - PITUITARY TUMOUR BENIGN [None]
  - SKIN ULCER [None]
  - WEIGHT INCREASED [None]
